FAERS Safety Report 9197216 (Version 1)
Quarter: 2013Q1

REPORT INFORMATION
  Report Type: Spontaneous
  Country: US (occurrence: None)
  Receive Date: 20120709
  Receipt Date: 20120709
  Transmission Date: 20140127
  Serious: No
  Sender: FDA-Public Use
  Company Number: 2012HGS-003562

PATIENT
  Age: 61 Year
  Sex: Female
  Weight: 86.18 kg

DRUGS (22)
  1. BENLYSTA [Suspect]
     Indication: SYSTEMIC LUPUS ERYTHEMATOSUS
     Dosage: 1 IN 28 D
     Route: 041
  2. LEVOTHYROXINE (LEVOTHYROXINE) (LEVOTHYROXINE) [Concomitant]
  3. GABAPENTIN (GABAPENTIN) (GABAPENTIN) [Concomitant]
  4. ATENOLOL (ATENOLOL) (ATENOLOL) [Concomitant]
  5. PREDNISONE (PREDNISONE) (PREDNISONE) [Concomitant]
  6. LORTAB (VICODIN) (PARACETAMOL, HYDROCODONE BITARTRATE) [Concomitant]
  7. FENOFIBRATE (FENOFIBRATE) FENOFIBRATE) [Concomitant]
  8. TRAZODONE (TRAZODONE) (TRAZODONE) [Concomitant]
  9. COMPAZINE (CHLORPERAZINE EDISYLATE) (PROCHLORPERAZINE EDISYLATE) [Concomitant]
  10. TORSEMIDE (TORASEMIDE) (TORASEMIDE) [Concomitant]
  11. GAS X (SIMETICONE) (SIMETICONE) [Concomitant]
  12. IMODIUM (LOPERAMIDE HYDROCHLORIDE) (LOPERAMIDE HYDROCHLORIDE) [Concomitant]
  13. MULTIPLE VITAMIN (MULTIPLE VITAMINS  (ERGOCALCIFEROL, ASCORBIC ACID, TOCOPHEROL, FOLIC ACID, RETINOL, VITAMIN B NOS) [Concomitant]
  14. FORTEO (TERIPARTIDE) (TERIPARTIDE) [Concomitant]
  15. VICTOZA (LIRAGLUTIDE) (LIRAGLUTIDE) [Concomitant]
  16. VITAMIN D3 (COLECALCIFEROL) (COLECALCIFEROL) [Concomitant]
  17. VITAMIN B12 (CYANOCOBALMIN) (CYANOCOBALMIN) [Concomitant]
  18. VITAMIN C (ASCORBIC ACID ) (ASCORBIC ACID) [Concomitant]
  19. PREVACID (LANSOPRAZOLE) (LANSOPRAZOLE) [Concomitant]
  20. ISOSORBIDE (ISOSORBIDE) (ISOSORBIDE) [Concomitant]
  21. OXYCONTIN (OXYCODONE HYDROCHLORIDE) (OXYCODONE HYDROCHLORIDE) [Concomitant]
  22. OMEGA RED (FISH OIL) (FISH OIL) [Concomitant]

REACTIONS (6)
  - Decreased appetite [None]
  - Pain [None]
  - Skin mass [None]
  - Influenza [None]
  - Cough [None]
  - Pyrexia [None]
